FAERS Safety Report 25430547 (Version 1)
Quarter: 2025Q2

REPORT INFORMATION
  Report Type: Spontaneous
  Country: US (occurrence: US)
  Receive Date: 20250612
  Receipt Date: 20250612
  Transmission Date: 20250717
  Serious: No
  Sender: SANOFI AVENTIS
  Company Number: US-SA-2025SA166583

PATIENT
  Sex: Female

DRUGS (17)
  1. DUPIXENT [Suspect]
     Active Substance: DUPILUMAB
     Indication: Asthma
     Dosage: 300 MG, QOW
     Route: 058
  2. YUPELRI [Concomitant]
     Active Substance: REVEFENACIN
  3. ALENDRONATE [Concomitant]
     Active Substance: ALENDRONATE SODIUM
  4. BUDESONIDE [Concomitant]
     Active Substance: BUDESONIDE
  5. FAMOTIDINE [Concomitant]
     Active Substance: FAMOTIDINE
  6. LEVOXYL [Concomitant]
     Active Substance: LEVOTHYROXINE SODIUM
  7. LORATADINE [Concomitant]
     Active Substance: LORATADINE
  8. MUCINEX [Concomitant]
     Active Substance: GUAIFENESIN
  9. PREGABALIN [Concomitant]
     Active Substance: PREGABALIN
  10. SIMVASTATIN [Concomitant]
     Active Substance: SIMVASTATIN
  11. ALBUTEROL SULFATE [Concomitant]
     Active Substance: ALBUTEROL SULFATE
  12. TRELEGY ELLIPTA [Concomitant]
     Active Substance: FLUTICASONE FUROATE\UMECLIDINIUM BROMIDE\VILANTEROL TRIFENATATE
  13. IPRATROPIUM [Concomitant]
     Active Substance: IPRATROPIUM
  14. FORMOTEROL [Concomitant]
     Active Substance: FORMOTEROL
  15. HYDROCODONE [Concomitant]
     Active Substance: HYDROCODONE
  16. MONTELUKAST [Concomitant]
     Active Substance: MONTELUKAST
  17. VITAMIN D2 [Concomitant]
     Active Substance: ERGOCALCIFEROL

REACTIONS (1)
  - Injection site pain [Recovered/Resolved]
